FAERS Safety Report 7325362-7 (Version None)
Quarter: 2011Q1

REPORT INFORMATION
  Report Type: 
  Country: None (occurrence: None)
  Receive Date: 20110218
  Receipt Date: 20110204
  Transmission Date: 20110831
  Serious: Yes (Hospitalization)
  Sender: FDA-Public Use
  Company Number: DSJ-2010-12652

PATIENT
  Age: 77 Year
  Sex: Male

DRUGS (10)
  1. BLOPRESS (CANDESARTAN CILEXETIL) (TABLET) (CANDESARTAN CILEXETIL) [Concomitant]
  2. ALLOPURINOL [Concomitant]
  3. OLMETEC (OLMESARTAN MEDOXOMIL) (TABLET) (OLMESARTAN) [Suspect]
     Indication: ESSENTIAL HYPERTENSION
     Dosage: 10 MG (10 MG 1 IN 1 D), PER ORAL
     Route: 048
     Dates: start: 20100313
  4. LIVALO [Concomitant]
  5. ATELEC (CLINIDIPINE) (TABLET) (CILNIDIPINE) [Concomitant]
  6. NOVOLIN R (INSULIN HUMAN) (INJECTION) (INSULIN HUMAN) [Concomitant]
  7. BASEN (VOGLIBOSE) (TABLET) (VOGLIBOSE) [Concomitant]
  8. LEVEMIR (INSULIN DETEMIR) (INJECTION) (INSULIN DELERMIR) [Concomitant]
  9. PURSENNID (SENNA ALEXANDRIA LEAF) (SENNA ALEXANDRINA LEAF) [Concomitant]
  10. SELOKEN (METOPROLOL TARTRATE) (METOPROLOL TARTRATE) [Concomitant]

REACTIONS (1)
  - PNEUMONIA ASPIRATION [None]
